FAERS Safety Report 4971189-0 (Version None)
Quarter: 2006Q1

REPORT INFORMATION
  Report Type: 
  Country: None (occurrence: None)
  Receive Date: 20060216
  Receipt Date: 20030911
  Transmission Date: 20060701
  Serious: Yes (Other)
  Sender: FDA-Public Use
  Company Number: 2003IM000891

PATIENT
  Age: 53 Year
  Sex: Female
  Weight: 66 kg

DRUGS (9)
  1. INTERFERON GAMMA-1B [Suspect]
     Indication: OVARIAN CANCER
     Dosage: 100 UG, TIW, SUBCUTANEOUS
     Route: 058
     Dates: start: 20030424, end: 20030526
  2. CARBOPLATIN [Suspect]
     Indication: OVARIAN CANCER
     Dosage: 653 MG, Q3W, INTRAVENOUS
     Route: 042
     Dates: start: 20030424, end: 20030515
  3. PACLITAXEL [Suspect]
     Indication: OVARIAN CANCER
     Dosage: 306 MG, Q3W, INTRAVENOUS
     Route: 042
     Dates: start: 20030424, end: 20030515
  4. DIPHENHYDRAMINE HCL [Concomitant]
  5. RANITIDINE [Concomitant]
  6. MAXERAN [Concomitant]
  7. ESTACE [Concomitant]
  8. ECHINACEA EXTRACT [Concomitant]
  9. VITAMIN B6 [Concomitant]

REACTIONS (1)
  - NEUTROPENIA [None]
